APPROVED DRUG PRODUCT: IRINOTECAN HYDROCHLORIDE
Active Ingredient: IRINOTECAN HYDROCHLORIDE
Strength: 500MG/25ML (20MG/ML)
Dosage Form/Route: INJECTABLE;INJECTION
Application: A213278 | Product #004 | TE Code: AP
Applicant: EUGIA PHARMA SPECIALITIES LTD
Approved: Apr 11, 2022 | RLD: No | RS: No | Type: RX